FAERS Safety Report 10006576 (Version 2)
Quarter: 2014Q2

REPORT INFORMATION
  Report Type: Spontaneous
  Country: US (occurrence: US)
  Receive Date: 20140313
  Receipt Date: 20140618
  Transmission Date: 20141212
  Serious: Yes (Other)
  Sender: FDA-Public Use
  Company Number: US-PFIZER INC-2014066853

PATIENT
  Age: 59 Year
  Sex: Female

DRUGS (9)
  1. LIPITOR [Suspect]
     Indication: LOW DENSITY LIPOPROTEIN INCREASED
     Dosage: 20 MG, DAILY
     Route: 048
     Dates: start: 20080830, end: 2011
  2. LIPITOR [Suspect]
     Indication: BLOOD TRIGLYCERIDES INCREASED
  3. LIPITOR [Suspect]
     Indication: CARDIOVASCULAR EVENT PROPHYLAXIS
  4. ATENOLOL AND CHLORTHAL [Concomitant]
     Indication: BLOOD PRESSURE INCREASED
     Dosage: 50-25 MG UNK
     Dates: start: 1999
  5. ASPIRIN [Concomitant]
     Indication: MYOCARDIAL INFARCTION
     Dosage: 81 MG, DAILY
     Dates: start: 1999
  6. ASPIRIN [Concomitant]
     Indication: CEREBROVASCULAR ACCIDENT
  7. TRICOR [Concomitant]
     Indication: BLOOD CHOLESTEROL INCREASED
     Dosage: 145 MG, UNK
     Dates: start: 20080201, end: 20090801
  8. AMITRIPTYLINE HYDROCHLORIDE [Concomitant]
     Indication: INSOMNIA
     Dosage: 50 MG, UNK
     Dates: start: 20080310
  9. AMBIEN CR [Concomitant]
     Indication: INSOMNIA
     Dosage: 6.25 MG, UNK
     Dates: start: 20080310, end: 20110104

REACTIONS (1)
  - Type 2 diabetes mellitus [Not Recovered/Not Resolved]
